FAERS Safety Report 26176281 (Version 1)
Quarter: 2025Q4

REPORT INFORMATION
  Report Type: Spontaneous
  Country: US (occurrence: None)
  Receive Date: 20251218
  Receipt Date: 20251218
  Transmission Date: 20260119
  Serious: Yes (Hospitalization)
  Sender: FDA-CTU
  Company Number: None

PATIENT
  Age: 68 Year
  Sex: Female

DRUGS (1)
  1. TAVNEOS [Suspect]
     Active Substance: AVACOPAN
     Indication: Anti-neutrophil cytoplasmic antibody positive vasculitis
     Dosage: 10 MG TWICE A DAY ORAL
     Route: 048
     Dates: start: 20250730

REACTIONS (7)
  - Pulmonary oedema [None]
  - Pneumonia [None]
  - Sinusitis [None]
  - Ear infection [None]
  - Sneezing [None]
  - Ear haemorrhage [None]
  - Tympanic membrane perforation [None]

NARRATIVE: CASE EVENT DATE: 20251218
